FAERS Safety Report 4325774-X (Version None)
Quarter: 2004Q1

REPORT INFORMATION
  Report Type: 
  Country: None (occurrence: None)
  Receive Date: 20040324
  Receipt Date: 20040311
  Transmission Date: 20041129
  Serious: Yes (Hospitalization)
  Sender: FDA-Public Use
  Company Number: US_990217279

PATIENT
  Age: 29 Year
  Sex: Female
  Weight: 61 kg

DRUGS (13)
  1. HUMATROPE [Suspect]
     Indication: GROWTH HORMONE DEFICIENCY
     Dosage: 0.52 MG/1 DAY
     Dates: start: 19980203
  2. SYNTHROID [Concomitant]
  3. CORTEF [Concomitant]
  4. PREMARIN [Concomitant]
  5. PROVERA [Concomitant]
  6. CLARITIN [Concomitant]
  7. MULTI-VITAMIN [Concomitant]
  8. FERROUS SULFATE TAB [Concomitant]
  9. SINGULAIR [Concomitant]
  10. FLOVENT [Concomitant]
  11. ALBUTEROL [Concomitant]
  12. SEREVENT [Concomitant]
  13. ALLEGRA [Concomitant]

REACTIONS (6)
  - ASTHMA [None]
  - BRONCHITIS [None]
  - DEHYDRATION [None]
  - GASTROENTERITIS BACTERIAL [None]
  - HYPOTENSION [None]
  - NASOPHARYNGITIS [None]
